FAERS Safety Report 19144780 (Version 1)
Quarter: 2021Q2

REPORT INFORMATION
  Report Type: Spontaneous
  Country: US (occurrence: US)
  Receive Date: 20210415
  Receipt Date: 20210415
  Transmission Date: 20210717
  Serious: No
  Sender: FDA-Public Use
  Company Number: None

PATIENT
  Age: 83 Year
  Sex: Female
  Weight: 30.39 kg

DRUGS (12)
  1. FAMOTIDINE. [Concomitant]
     Active Substance: FAMOTIDINE
  2. IPRATROPIUM [Concomitant]
     Active Substance: IPRATROPIUM
  3. SALMETEROL [Concomitant]
     Active Substance: SALMETEROL
  4. ALBUTEROL. [Concomitant]
     Active Substance: ALBUTEROL
  5. LISINOPRIL. [Concomitant]
     Active Substance: LISINOPRIL
  6. MOMETASONE [Concomitant]
     Active Substance: MOMETASONE
  7. TRAZODONE [Concomitant]
     Active Substance: TRAZODONE HYDROCHLORIDE
  8. HYDROCODONE/ACETAMINOPHEN [Concomitant]
     Active Substance: ACETAMINOPHEN\HYDROCODONE
  9. GABAPENTIN. [Concomitant]
     Active Substance: GABAPENTIN
  10. THEOPHYLLINE [Suspect]
     Active Substance: THEOPHYLLINE ANHYDROUS
     Route: 048
  11. CHOLECALCIFEROL [Concomitant]
     Active Substance: CHOLECALCIFEROL
  12. OXYBUTYNIN. [Concomitant]
     Active Substance: OXYBUTYNIN CHLORIDE

REACTIONS (1)
  - Hypoaesthesia [None]

NARRATIVE: CASE EVENT DATE: 20201009
